FAERS Safety Report 6827668-4 (Version None)
Quarter: 2010Q3

REPORT INFORMATION
  Report Type: 
  Country: None (occurrence: None)
  Receive Date: 20100709
  Receipt Date: 20070124
  Transmission Date: 20110219
  Serious: No
  Sender: FDA-Public Use
  Company Number: US-PFIZER INC-2007004925

PATIENT
  Sex: Female
  Weight: 48.99 kg

DRUGS (2)
  1. CHANTIX [Suspect]
     Indication: SMOKING CESSATION THERAPY
     Dates: start: 20070107, end: 20070123
  2. SUMATRIPTAN SUCCINATE (IMITREX) [Concomitant]
     Indication: HEADACHE

REACTIONS (5)
  - DRUG INEFFECTIVE [None]
  - NAUSEA [None]
  - TOBACCO USER [None]
  - VIRAL INFECTION [None]
  - VOMITING [None]
